FAERS Safety Report 19086946 (Version 6)
Quarter: 2021Q4

REPORT INFORMATION
  Report Type: Report from Study
  Country: US (occurrence: US)
  Receive Date: 20210402
  Receipt Date: 20211014
  Transmission Date: 20220303
  Serious: No
  Sender: FDA-Public Use
  Company Number: US-NOVARTISTESTPH-NVSC2021US068633

PATIENT
  Age: 68 Year
  Sex: Male

DRUGS (1)
  1. ENTRESTO [Suspect]
     Active Substance: SACUBITRIL\VALSARTAN
     Indication: Product used for unknown indication
     Dosage: 200 MG, BID (97/103 MG)
     Route: 048
     Dates: start: 202007

REACTIONS (9)
  - Mobility decreased [Unknown]
  - Weight loss poor [Unknown]
  - Throat clearing [Unknown]
  - Thyroid disorder [Recovering/Resolving]
  - Hypotension [Unknown]
  - Gait disturbance [Recovering/Resolving]
  - Ill-defined disorder [Unknown]
  - Depressed mood [Unknown]
  - Walking disability [Recovering/Resolving]

NARRATIVE: CASE EVENT DATE: 20210301
